FAERS Safety Report 23240689 (Version 1)
Quarter: 2023Q4

REPORT INFORMATION
  Report Type: Report from Study
  Country: HN (occurrence: HN)
  Receive Date: 20231129
  Receipt Date: 20231129
  Transmission Date: 20240110
  Serious: Yes (Other)
  Sender: FDA-Public Use
  Company Number: HN-002147023-NVSC2023HN250645

PATIENT
  Age: 64 Year
  Sex: Female

DRUGS (1)
  1. EXFORGE HCT [Suspect]
     Active Substance: AMLODIPINE BESYLATE\HYDROCHLOROTHIAZIDE\VALSARTAN
     Indication: Hypertension
     Dosage: QD (10/320/25 MG)
     Route: 048
     Dates: start: 2013, end: 202307

REACTIONS (2)
  - Peripheral swelling [Recovered/Resolved]
  - Drug intolerance [Unknown]

NARRATIVE: CASE EVENT DATE: 20230701
